FAERS Safety Report 8405899-X (Version None)
Quarter: 2012Q2

REPORT INFORMATION
  Report Type: 
  Country: None (occurrence: None)
  Receive Date: 20120529
  Receipt Date: 20060203
  Transmission Date: 20120825
  Serious: Yes (Hospitalization)
  Sender: FDA-Public Use
  Company Number: 15691-USA-06-0362

PATIENT
  Age: 61 Year
  Sex: Male

DRUGS (15)
  1. SIMVASTATIN [Concomitant]
  2. CLOPIDEGREL [Concomitant]
  3. GLIMEPIRID (GLIMEPIRIDE) [Concomitant]
  4. METOPROLOL TARTRATE [Concomitant]
  5. INSULIN (INSULIN) [Concomitant]
  6. FUROSEMIDE [Concomitant]
  7. FELODIPIN (FELODIPINE) [Concomitant]
  8. ZOPICLONE (ZOPICLONE) [Concomitant]
  9. TOLVAPTAN (TOLVAPTAN(V4.1)) 30MG [Suspect]
     Indication: CARDIAC FAILURE CONGESTIVE
     Dosage: 30 MG, QD, ORAL
     Route: 048
     Dates: start: 20041105, end: 20060109
  10. TOLVAPTAN (TOLVAPTAN(V4.1)) 30MG [Suspect]
     Indication: CARDIAC FAILURE CONGESTIVE
     Dosage: 30 MG, QD, ORAL
     Route: 048
     Dates: start: 20060112
  11. RAMIPRIL [Concomitant]
  12. ACETYLCYSTEINE [Concomitant]
  13. ACID ACETYLSALICYLIC (ACETYLSALICYLIC ACID) [Concomitant]
  14. INSULIN HUMAN (INSULIN HUMAN) [Concomitant]
  15. SPIRONOLACTONE [Concomitant]

REACTIONS (3)
  - CONDITION AGGRAVATED [None]
  - CARDIAC FAILURE [None]
  - ANGINA PECTORIS [None]
